FAERS Safety Report 10263641 (Version 1)
Quarter: 2014Q2

REPORT INFORMATION
  Report Type: Spontaneous
  Country: US (occurrence: US)
  Receive Date: 20140626
  Receipt Date: 20140626
  Transmission Date: 20141212
  Serious: No
  Sender: FDA-Public Use
  Company Number: US-009507513-1406USA012052

PATIENT
  Sex: Female

DRUGS (1)
  1. IMPLANON [Suspect]
     Indication: CONTRACEPTION
     Dosage: 1 ROD
     Route: 059
     Dates: start: 201106, end: 20140613

REACTIONS (4)
  - Implant site fibrosis [Unknown]
  - Implant site scar [Unknown]
  - Fat tissue increased [Unknown]
  - Device difficult to use [Unknown]
